FAERS Safety Report 13903469 (Version 3)
Quarter: 2017Q3

REPORT INFORMATION
  Report Type: Spontaneous
  Country: US (occurrence: US)
  Receive Date: 20170824
  Receipt Date: 20170907
  Transmission Date: 20171127
  Serious: No
  Sender: FDA-Public Use
  Company Number: US-PFIZER INC-2017362955

PATIENT
  Age: 59 Year
  Sex: Female
  Weight: 87.53 kg

DRUGS (2)
  1. IBRANCE [Suspect]
     Active Substance: PALBOCICLIB
     Indication: BREAST CANCER METASTATIC
     Dosage: 125 MG, CYCLIC [D1-21 Q 28 DAYS]
     Route: 048
     Dates: start: 20170811
  2. IBRANCE [Suspect]
     Active Substance: PALBOCICLIB
     Dosage: 125 MG, CYCLIC [D1-21 Q 28 DAYS]
     Route: 048
     Dates: start: 20170811

REACTIONS (8)
  - Vomiting [Unknown]
  - Oral pain [Recovered/Resolved]
  - Stomatitis [Recovered/Resolved]
  - Oral discomfort [Recovered/Resolved]
  - Nausea [Unknown]
  - Eczema [Unknown]
  - Oral disorder [Recovering/Resolving]
  - Pruritus [Unknown]
